FAERS Safety Report 25712878 (Version 2)
Quarter: 2025Q3

REPORT INFORMATION
  Report Type: Report from Study
  Country: KR (occurrence: KR)
  Receive Date: 20250821
  Receipt Date: 20250908
  Transmission Date: 20251020
  Serious: Yes (Other)
  Sender: PHARMING GROUP
  Company Number: KR-PHARMING-PHAKR2025001167

PATIENT

DRUGS (1)
  1. LENIOLISIB PHOSPHATE [Suspect]
     Active Substance: LENIOLISIB PHOSPHATE
     Indication: Activated PI3 kinase delta syndrome
     Dosage: 70 MILLIGRAM, BID
     Route: 048
     Dates: start: 20250310

REACTIONS (2)
  - Leukopenia [Unknown]
  - Alopecia [Unknown]

NARRATIVE: CASE EVENT DATE: 20250811
